FAERS Safety Report 23446953 (Version 1)
Quarter: 2024Q1

REPORT INFORMATION
  Report Type: Spontaneous
  Country: US (occurrence: None)
  Receive Date: 20240125
  Receipt Date: 20240125
  Transmission Date: 20240409
  Serious: No
  Sender: FDA-Public Use
  Company Number: None

PATIENT
  Age: 38 Year
  Sex: Female
  Weight: 83.25 kg

DRUGS (1)
  1. SEMAGLUTIDE [Suspect]
     Active Substance: SEMAGLUTIDE
     Indication: Weight decreased
     Dosage: 1 INJECTION WEEKLY SUBCUTANEOUS ?
     Route: 058
     Dates: start: 20220501, end: 20240125

REACTIONS (5)
  - Weight increased [None]
  - Product measured potency issue [None]
  - Drug ineffective [None]
  - Adverse event [None]
  - Product preparation error [None]

NARRATIVE: CASE EVENT DATE: 20240121
